FAERS Safety Report 18469659 (Version 6)
Quarter: 2021Q2

REPORT INFORMATION
  Report Type: Report from Study
  Country: NG (occurrence: NG)
  Receive Date: 20201105
  Receipt Date: 20210614
  Transmission Date: 20210717
  Serious: Yes (Other)
  Sender: FDA-Public Use
  Company Number: NVSC2020NG294183

PATIENT
  Age: 60 Year
  Sex: Female

DRUGS (1)
  1. UPERIO [Suspect]
     Active Substance: SACUBITRIL\VALSARTAN
     Indication: PRODUCT USED FOR UNKNOWN INDICATION
     Dosage: 50 MG, BID (24/ 26 MG) (50MG/ KG)
     Route: 048
     Dates: start: 2017

REACTIONS (8)
  - Pyrexia [Unknown]
  - General physical condition abnormal [Unknown]
  - Cough [Recovered/Resolved]
  - Catarrh [Unknown]
  - Productive cough [Not Recovered/Not Resolved]
  - Ulcer [Recovering/Resolving]
  - Dyspnoea at rest [Unknown]
  - Chest discomfort [Recovering/Resolving]

NARRATIVE: CASE EVENT DATE: 20200918
